FAERS Safety Report 24009956 (Version 1)
Quarter: 2024Q2

REPORT INFORMATION
  Report Type: Spontaneous
  Country: US (occurrence: None)
  Receive Date: 20240624
  Receipt Date: 20240624
  Transmission Date: 20240715
  Serious: Yes (Hospitalization)
  Sender: FDA-Public Use
  Company Number: None

PATIENT
  Age: 73 Year
  Sex: Male

DRUGS (1)
  1. SOFOSBUVIR AND VELPATASVIR [Suspect]
     Active Substance: SOFOSBUVIR\VELPATASVIR
     Indication: Chronic hepatitis C
     Dosage: OTHER QUANTITY : 400-100MG;?FREQUENCY : DAILY;?

REACTIONS (7)
  - Fatigue [None]
  - Asthenia [None]
  - Fall [None]
  - Laboratory test abnormal [None]
  - Heart rate decreased [None]
  - Dialysis [None]
  - Intentional dose omission [None]

NARRATIVE: CASE EVENT DATE: 20240618
